FAERS Safety Report 18684261 (Version 2)
Quarter: 2021Q2

REPORT INFORMATION
  Report Type: Report from Study
  Country: NO (occurrence: NO)
  Receive Date: 20201230
  Receipt Date: 20210408
  Transmission Date: 20210717
  Serious: Yes (Disabling)
  Sender: FDA-Public Use
  Company Number: NO-BAYER-2020-285023

PATIENT

DRUGS (2)
  1. GADOVIST [Suspect]
     Active Substance: GADOBUTROL
     Indication: MAGNETIC RESONANCE IMAGING
     Dosage: UNK ONCE
     Route: 037
     Dates: start: 20170917, end: 20170917
  2. VISIPAQUE [Concomitant]
     Active Substance: IODIXANOL
     Indication: MAGNETIC RESONANCE IMAGING
     Dosage: 270 MG I/ML, 3 ML

REACTIONS (8)
  - Nausea [Recovered/Resolved]
  - Incorrect route of product administration [None]
  - Arthralgia [None]
  - Musculoskeletal stiffness [None]
  - Limb discomfort [None]
  - Post lumbar puncture syndrome [Recovered/Resolved]
  - Dizziness [Recovered/Resolved]
  - Pain [None]

NARRATIVE: CASE EVENT DATE: 20170917
